FAERS Safety Report 16373202 (Version 1)
Quarter: 2019Q2

REPORT INFORMATION
  Report Type: Spontaneous
  Country: FR (occurrence: FR)
  Receive Date: 20190530
  Receipt Date: 20190530
  Transmission Date: 20190711
  Serious: Yes (Congenital Anomaly)
  Sender: FDA-Public Use
  Company Number: FR-TEVA-2019-FR-1056428

PATIENT
  Age: 38 Year
  Sex: Male

DRUGS (1)
  1. PAROXETINE. [Suspect]
     Active Substance: PAROXETINE
     Indication: PHOBIA
     Dates: start: 2002

REACTIONS (6)
  - Testis discomfort [Not Recovered/Not Resolved]
  - Pain [Not Recovered/Not Resolved]
  - Sexual dysfunction [Not Recovered/Not Resolved]
  - Hydrocele [Not Recovered/Not Resolved]
  - Testicular retraction [Not Recovered/Not Resolved]
  - Ejaculation failure [Not Recovered/Not Resolved]
